FAERS Safety Report 25602520 (Version 2)
Quarter: 2025Q3

REPORT INFORMATION
  Report Type: Spontaneous
  Country: JP (occurrence: JP)
  Receive Date: 20250724
  Receipt Date: 20250924
  Transmission Date: 20251021
  Serious: Yes (Hospitalization, Other)
  Sender: ROCHE
  Company Number: JP-CHUGAI-2025023377

PATIENT
  Age: 68 Year
  Sex: Female

DRUGS (2)
  1. TECENTRIQ [Suspect]
     Active Substance: ATEZOLIZUMAB
     Indication: Triple negative breast cancer
     Dosage: 840 MILLIGRAM, ONCE/2WEEKS
     Route: 042
     Dates: start: 20200305, end: 20250306
  2. PACLITAXEL [Concomitant]
     Active Substance: PACLITAXEL
     Indication: Triple negative breast cancer
     Route: 042

REACTIONS (4)
  - Interstitial lung disease [Not Recovered/Not Resolved]
  - Pulmonary resection [Unknown]
  - Hypothyroidism [Unknown]
  - Constipation [Unknown]

NARRATIVE: CASE EVENT DATE: 20250327
